FAERS Safety Report 24440757 (Version 1)
Quarter: 2024Q4

REPORT INFORMATION
  Report Type: Spontaneous
  Country: US (occurrence: US)
  Receive Date: 20241016
  Receipt Date: 20241016
  Transmission Date: 20250114
  Serious: No
  Sender: AMGEN
  Company Number: US-AMGEN-USASP2024202556

PATIENT

DRUGS (1)
  1. AIMOVIG [Suspect]
     Active Substance: ERENUMAB-AOOE
     Indication: Product used for unknown indication
     Dosage: UNK
     Route: 065

REACTIONS (9)
  - Agitation [Unknown]
  - Feeling abnormal [Unknown]
  - Nausea [Unknown]
  - Pain in extremity [Unknown]
  - Erythema [Unknown]
  - Skin discolouration [Unknown]
  - Peripheral swelling [Unknown]
  - Device difficult to use [Unknown]
  - Wrong technique in product usage process [Unknown]
